FAERS Safety Report 14575322 (Version 1)
Quarter: 2018Q1

REPORT INFORMATION
  Report Type: Spontaneous
  Country: US (occurrence: US)
  Receive Date: 20180227
  Receipt Date: 20180227
  Transmission Date: 20180509
  Serious: No
  Sender: FDA-Public Use
  Company Number: US-ROCHE-1993737

PATIENT
  Age: 8 Year
  Sex: Female
  Weight: 20.7 kg

DRUGS (1)
  1. XOLAIR [Suspect]
     Active Substance: OMALIZUMAB
     Indication: ASTHMA
     Dosage: YES
     Route: 058
     Dates: start: 20170113

REACTIONS (4)
  - Nausea [Recovering/Resolving]
  - Abdominal pain upper [Unknown]
  - Diarrhoea [Unknown]
  - Headache [Recovering/Resolving]

NARRATIVE: CASE EVENT DATE: 201704
